FAERS Safety Report 20265703 (Version 1)
Quarter: 2021Q4

REPORT INFORMATION
  Report Type: Report from Study
  Country: TH (occurrence: TH)
  Receive Date: 20211231
  Receipt Date: 20211231
  Transmission Date: 20220303
  Serious: Yes (Other)
  Sender: FDA-Public Use
  Company Number: TH-NOVARTISPH-PHHY2018TH201510

PATIENT
  Sex: Female
  Weight: 58 kg

DRUGS (10)
  1. ENTRESTO [Suspect]
     Active Substance: SACUBITRIL\VALSARTAN
     Indication: Cardiac failure
     Dosage: 100 MG (SACUBITRIL 24 MG/VALSARTAN 26 MG), BID
     Route: 048
  2. ENTRESTO [Suspect]
     Active Substance: SACUBITRIL\VALSARTAN
     Dosage: 0.5 DF (200 MG, 1/2 BID), UNK
     Route: 065
  3. ENTRESTO [Suspect]
     Active Substance: SACUBITRIL\VALSARTAN
     Dosage: 0.25 DF, BID (200 G)
     Route: 048
  4. ENTRESTO [Suspect]
     Active Substance: SACUBITRIL\VALSARTAN
     Dosage: 200 MG, 1/4 TAB
     Route: 048
  5. ENTRESTO [Suspect]
     Active Substance: SACUBITRIL\VALSARTAN
     Dosage: 200 MG, BID (A QUARTER OF TABLET, AFTER MEAL)
     Route: 048
  6. ENTRESTO [Suspect]
     Active Substance: SACUBITRIL\VALSARTAN
     Dosage: 100 MG, (200 MG, HALF DAY, BID)
     Route: 048
     Dates: end: 20190301
  7. SPIRONOLACTONE [Concomitant]
     Active Substance: SPIRONOLACTONE
     Indication: Product used for unknown indication
     Dosage: 25 MG, 1/2 TAB 1 PC
     Route: 048
  8. CARVEDILOL [Concomitant]
     Active Substance: CARVEDILOL
     Indication: Product used for unknown indication
     Dosage: 2.5 MG, 1 TAB 2 PC
     Route: 048
  9. FUROSEMIDE [Concomitant]
     Active Substance: FUROSEMIDE
     Indication: Oedema
     Dosage: 40 MG, 1 TAB PRN
     Route: 048
  10. SIMVASTATIN [Concomitant]
     Active Substance: SIMVASTATIN
     Indication: Product used for unknown indication
     Dosage: 10 MG, 2 TAB OD , HS
     Route: 048

REACTIONS (9)
  - Congestive cardiomyopathy [Unknown]
  - Toxic goitre [Unknown]
  - Breast cancer female [Unknown]
  - Mitral valve incompetence [Unknown]
  - Body mass index increased [Unknown]
  - Waist circumference increased [Unknown]
  - Hypotension [Unknown]
  - Product prescribing error [Unknown]
  - Wrong technique in product usage process [Unknown]
